FAERS Safety Report 20123386 (Version 2)
Quarter: 2021Q4

REPORT INFORMATION
  Report Type: Spontaneous
  Country: FR (occurrence: US)
  Receive Date: 20211129
  Receipt Date: 20211203
  Transmission Date: 20220303
  Serious: Yes (Other)
  Sender: FDA-Public Use
  Company Number: FR-PFIZER INC-202101555592

PATIENT
  Age: 89 Year
  Sex: Male

DRUGS (2)
  1. DEXAMETHASONE [Suspect]
     Active Substance: DEXAMETHASONE
     Indication: Blastic plasmacytoid dendritic cell neoplasia
     Dosage: 20 MG, CYCLICAL
     Route: 065
  2. VINCRISTINE SULFATE [Suspect]
     Active Substance: VINCRISTINE SULFATE
     Indication: Blastic plasmacytoid dendritic cell neoplasia
     Dosage: 2 MG, CYCLICAL
     Route: 065

REACTIONS (2)
  - Neurotoxicity [Unknown]
  - Haematotoxicity [Unknown]
